FAERS Safety Report 7135712-2 (Version None)
Quarter: 2010Q4

REPORT INFORMATION
  Report Type: 
  Country: None (occurrence: None)
  Receive Date: 20101203
  Receipt Date: 20101124
  Transmission Date: 20110411
  Serious: Yes (Hospitalization)
  Sender: FDA-Public Use
  Company Number: US-ELI_LILLY_AND_COMPANY-US201011006615

PATIENT
  Sex: Female

DRUGS (2)
  1. HUMULIN N [Suspect]
     Dosage: UNK, UNK
     Dates: start: 20090101
  2. HUMULIN R [Suspect]
     Dosage: UNK, UNK
     Dates: start: 20090101

REACTIONS (8)
  - DRUG HYPERSENSITIVITY [None]
  - HOSPITALISATION [None]
  - HYPOACUSIS [None]
  - OEDEMA PERIPHERAL [None]
  - PAIN IN EXTREMITY [None]
  - SURGERY [None]
  - SWELLING [None]
  - SWELLING FACE [None]
